FAERS Safety Report 6038183-2 (Version None)
Quarter: 2009Q1

REPORT INFORMATION
  Report Type: 
  Country: None (occurrence: None)
  Receive Date: 20090115
  Receipt Date: 20090107
  Transmission Date: 20090719
  Serious: Yes (Other)
  Sender: FDA-Public Use
  Company Number: PHEH2009US00528

PATIENT
  Sex: Female

DRUGS (7)
  1. ZOMETA [Suspect]
     Indication: BREAST CANCER METASTATIC
     Dosage: 4 MG MONTHLY
     Route: 042
     Dates: start: 20040501, end: 20070501
  2. RADIATION [Concomitant]
  3. ANTINEOPLASTIC AGENTS [Concomitant]
  4. NORVASC [Concomitant]
  5. AROMASIN [Concomitant]
  6. LIPITOR [Concomitant]
  7. CELEBREX [Concomitant]

REACTIONS (2)
  - BONE DISORDER [None]
  - ORAL CAVITY FISTULA [None]
